FAERS Safety Report 5227368-0 (Version None)
Quarter: 2007Q1

REPORT INFORMATION
  Report Type: 
  Country: None (occurrence: None)
  Receive Date: 20070130
  Receipt Date: 20070123
  Transmission Date: 20070707
  Serious: Yes (Death, Hospitalization, Other)
  Sender: FDA-Public Use
  Company Number: 15414

PATIENT
  Age: 49 Year
  Sex: Female

DRUGS (11)
  1. PENTOSTATIN [Suspect]
     Indication: PROLYMPHOCYTIC LEUKAEMIA
     Dosage: 6.24 MG WEEKLY IV
     Route: 042
     Dates: start: 20061102
  2. CAMPATH [Suspect]
     Indication: PROLYMPHOCYTIC LEUKAEMIA
     Dosage: 30 MG 3/WK IV
     Route: 042
     Dates: start: 20061102
  3. FAMOTIDINE [Concomitant]
  4. FLUCONAZOLE [Concomitant]
  5. LO/OVRAL [Concomitant]
  6. ALLOPURINOL SODIUM [Concomitant]
  7. ALPRAZOLAM [Concomitant]
  8. VORICONAZOLE [Concomitant]
  9. VALACYCLOVIR HCL [Concomitant]
  10. BACTRIM [Concomitant]
  11. LORAZEPAM [Concomitant]

REACTIONS (20)
  - ACUTE RESPIRATORY DISTRESS SYNDROME [None]
  - ANAEMIA [None]
  - CATHETER SITE HAEMATOMA [None]
  - HAEMATOMA [None]
  - HYPERGLYCAEMIA [None]
  - HYPERNATRAEMIA [None]
  - HYPOTENSION [None]
  - IATROGENIC INJURY [None]
  - MALNUTRITION [None]
  - NODAL RHYTHM [None]
  - PLATELET COUNT DECREASED [None]
  - PNEUMONIA [None]
  - PULMONARY ALVEOLAR HAEMORRHAGE [None]
  - RESPIRATORY ACIDOSIS [None]
  - RESPIRATORY ARREST [None]
  - RESPIRATORY FAILURE [None]
  - RESPIRATORY SYNCYTIAL VIRUS INFECTION [None]
  - SPUTUM CULTURE POSITIVE [None]
  - VENOUS INJURY [None]
  - WHITE BLOOD CELL COUNT DECREASED [None]
